FAERS Safety Report 12705895 (Version 1)
Quarter: 2016Q3

REPORT INFORMATION
  Report Type: Spontaneous
  Country: JP (occurrence: JP)
  Receive Date: 20160901
  Receipt Date: 20160901
  Transmission Date: 20161109
  Serious: Yes (Death, Hospitalization, Other)
  Sender: FDA-Public Use
  Company Number: JP-ROCHE-1821955

PATIENT
  Age: 59 Year
  Sex: Female
  Weight: 33 kg

DRUGS (4)
  1. AVASTIN [Suspect]
     Active Substance: BEVACIZUMAB
     Indication: OVARIAN CANCER
     Route: 041
     Dates: start: 20140529, end: 20140822
  2. DOXIL [Concomitant]
     Active Substance: DOXORUBICIN HYDROCHLORIDE
     Indication: OVARIAN CANCER
     Route: 042
     Dates: start: 20140501, end: 20140822
  3. CELECOX [Concomitant]
     Active Substance: CELECOXIB
     Dosage: DOSAGE IS UNCERTAIN.
     Route: 048
  4. RINDERON V [Concomitant]
     Active Substance: BETAMETHASONE VALERATE
     Dosage: DOSAGE IS UNCERTAIN.
     Route: 048

REACTIONS (14)
  - Sepsis [Fatal]
  - Pyrexia [Unknown]
  - Trousseau^s syndrome [Unknown]
  - Mechanical ileus [Fatal]
  - Multiple organ dysfunction syndrome [Fatal]
  - Disseminated intravascular coagulation [Fatal]
  - Pleural effusion [Unknown]
  - Pneumonia aspiration [Unknown]
  - Peritonitis [Fatal]
  - Ovarian cancer [Fatal]
  - Ascites [Unknown]
  - Cerebral infarction [Unknown]
  - Small intestinal perforation [Fatal]
  - Urinary tract infection [Unknown]

NARRATIVE: CASE EVENT DATE: 20140914
